FAERS Safety Report 16538499 (Version 1)
Quarter: 2019Q3

REPORT INFORMATION
  Report Type: Spontaneous
  Country: US (occurrence: US)
  Receive Date: 20190708
  Receipt Date: 20190708
  Transmission Date: 20191004
  Serious: No
  Sender: FDA-Public Use
  Company Number: US-AUROBINDO-AUR-APL-2019-000525

PATIENT
  Sex: Female

DRUGS (1)
  1. CLOPIDOGREL [Suspect]
     Active Substance: CLOPIDOGREL BISULFATE
     Indication: BLOOD PRESSURE MEASUREMENT
     Dosage: 1 DOSAGE FORM, DAILY
     Route: 048
     Dates: start: 20181129

REACTIONS (5)
  - Oral discomfort [Recovering/Resolving]
  - Chest pain [Recovering/Resolving]
  - Wrong technique in product usage process [Unknown]
  - Dysphagia [Recovering/Resolving]
  - Oesophageal pain [Recovering/Resolving]
